FAERS Safety Report 16267049 (Version 1)
Quarter: 2019Q2

REPORT INFORMATION
  Report Type: Report from Study
  Country: US (occurrence: US)
  Receive Date: 20190502
  Receipt Date: 20190502
  Transmission Date: 20190711
  Serious: Yes (Hospitalization)
  Sender: FDA-Public Use
  Company Number: US-ACTELION-A-US2019-189817

PATIENT
  Age: 42 Year
  Sex: Female

DRUGS (1)
  1. OPSUMIT [Suspect]
     Active Substance: MACITENTAN
     Indication: PULMONARY ARTERIAL HYPERTENSION
     Dosage: 10 MG, QD
     Route: 048
     Dates: start: 20181025

REACTIONS (4)
  - Muscle strain [Unknown]
  - Oedema peripheral [Unknown]
  - Dyspnoea [Recovering/Resolving]
  - Musculoskeletal chest pain [Unknown]

NARRATIVE: CASE EVENT DATE: 20190410
